FAERS Safety Report 10218814 (Version 1)
Quarter: 2014Q2

REPORT INFORMATION
  Report Type: Spontaneous
  Country: FR (occurrence: FR)
  Receive Date: 20140605
  Receipt Date: 20140605
  Transmission Date: 20141212
  Serious: Yes (Other)
  Sender: FDA-Public Use
  Company Number: FR-TEVA-485015ISR

PATIENT
  Age: 41 Year
  Sex: Female

DRUGS (3)
  1. AMOXICILLIN [Suspect]
     Route: 065
  2. PRISTINAMYCIN [Suspect]
     Route: 065
  3. CLINDAMYCIN [Suspect]
     Route: 065

REACTIONS (3)
  - Type I hypersensitivity [Unknown]
  - Type IV hypersensitivity reaction [Recovering/Resolving]
  - Drug hypersensitivity [Recovering/Resolving]
